FAERS Safety Report 5574085-3 (Version None)
Quarter: 2007Q4

REPORT INFORMATION
  Report Type: 
  Country: None (occurrence: None)
  Receive Date: 20071221
  Receipt Date: 20071210
  Transmission Date: 20080405
  Serious: Yes (Hospitalization)
  Sender: FDA-Public Use
  Company Number: CIP07002597

PATIENT
  Age: 84 Year
  Sex: Female

DRUGS (5)
  1. FURADANTIN [Suspect]
     Dosage: 3 DF DAILY, ORAL
     Route: 048
  2. LEVOTHYROXINE SODIUM [Suspect]
     Dosage: 25 UG DAILY, ORAL
     Route: 048
  3. ZOPICLONE(ZOPICLONE) [Suspect]
     Dosage: 7.5 MG DAILY, ORAL
     Route: 048
  4. PLAVIX [Suspect]
     Dosage: 1 DF DAILY, ORAL
     Route: 048
  5. EQUANIL [Suspect]
     Dosage: 3 DF DAILY, RECTAL
     Route: 054

REACTIONS (1)
  - PANCREATITIS ACUTE [None]
